FAERS Safety Report 24239171 (Version 2)
Quarter: 2024Q3

REPORT INFORMATION
  Report Type: Spontaneous
  Country: US (occurrence: US)
  Receive Date: 20240822
  Receipt Date: 20240826
  Transmission Date: 20241017
  Serious: No
  Sender: CALLIDITAS THERAPEUTICS
  Company Number: US-Calliditas-2024CAL01543

PATIENT
  Age: 38 Year
  Sex: Female
  Weight: 125 kg

DRUGS (1)
  1. TARPEYO [Suspect]
     Active Substance: BUDESONIDE
     Indication: Haematuria
     Route: 048
     Dates: start: 20230801, end: 20240808

REACTIONS (2)
  - Dialysis [Unknown]
  - Off label use [Unknown]
